FAERS Safety Report 10410403 (Version 2)
Quarter: 2014Q3

REPORT INFORMATION
  Report Type: Spontaneous
  Country: US (occurrence: US)
  Receive Date: 20140826
  Receipt Date: 20140826
  Transmission Date: 20150326
  Serious: Yes (Hospitalization, Other)
  Sender: FDA-Public Use
  Company Number: US-009507513-2006-144661-NL

PATIENT
  Sex: Female
  Weight: 83.92 kg

DRUGS (10)
  1. PROPRANOLOL HYDROCHLORIDE. [Concomitant]
     Active Substance: PROPRANOLOL HYDROCHLORIDE
     Indication: PRODUCT USED FOR UNKNOWN INDICATION
     Dosage: 10 MG, BID
  2. NOREL [Concomitant]
     Indication: PRODUCT USED FOR UNKNOWN INDICATION
  3. AZITHROMYCIN [Concomitant]
     Active Substance: AZITHROMYCIN ANHYDROUS
     Indication: PRODUCT USED FOR UNKNOWN INDICATION
     Dosage: 250 MG, UNK
     Dates: start: 20060522
  4. AMOXICILLIN. [Concomitant]
     Active Substance: AMOXICILLIN
     Indication: PRODUCT USED FOR UNKNOWN INDICATION
     Dosage: 1000 MG, BID
     Dates: start: 20060505, end: 20060505
  5. COUMADIN [Suspect]
     Active Substance: WARFARIN SODIUM
     Indication: CEREBROVASCULAR ACCIDENT
     Dates: start: 200605
  6. NUVARING [Suspect]
     Active Substance: ETHINYL ESTRADIOL\ETONOGESTREL
     Indication: CONTRACEPTION
     Dosage: CONTINUING: NO
     Route: 067
     Dates: start: 20060126, end: 20060525
  7. ACETAMINOPHEN AND CODEINE [Concomitant]
     Active Substance: ACETAMINOPHEN\CODEINE PHOSPHATE
     Indication: PAIN
     Dosage: 1 TABLET Q 4 HRS PRN
     Dates: start: 20060522
  8. CIPROFLOXACIN HYDROCHLORIDE (+) DEXAMETHASONE [Concomitant]
     Indication: PRODUCT USED FOR UNKNOWN INDICATION
     Dosage: OTIC SUSPENSION
  9. TYLENOL WITH CODEINE [Concomitant]
     Active Substance: ACETAMINOPHEN\CODEINE PHOSPHATE
     Indication: PRODUCT USED FOR UNKNOWN INDICATION
  10. NEURONTIN [Concomitant]
     Active Substance: GABAPENTIN
     Indication: PRODUCT USED FOR UNKNOWN INDICATION

REACTIONS (20)
  - Musculoskeletal chest pain [Unknown]
  - Blood cholesterol increased [Unknown]
  - Pharyngitis [Unknown]
  - Ovarian cyst [Unknown]
  - Urinary tract infection [Recovered/Resolved]
  - Menorrhagia [Unknown]
  - Amenorrhoea [Unknown]
  - Subarachnoid haemorrhage [Unknown]
  - Back injury [Unknown]
  - Blood triglycerides increased [Unknown]
  - Antiphospholipid antibodies positive [Unknown]
  - Abdominal pain lower [Unknown]
  - Depression [Unknown]
  - Ear infection [Unknown]
  - Nephrolithiasis [Not Recovered/Not Resolved]
  - Sacroiliitis [Unknown]
  - Headache [Unknown]
  - Hydronephrosis [Recovered/Resolved]
  - Transverse sinus thrombosis [Not Recovered/Not Resolved]
  - Nausea [Unknown]

NARRATIVE: CASE EVENT DATE: 2006
